FAERS Safety Report 9649660 (Version 2)
Quarter: 2013Q4

REPORT INFORMATION
  Report Type: Spontaneous
  Country: PL (occurrence: PL)
  Receive Date: 20131028
  Receipt Date: 20131028
  Transmission Date: 20140711
  Serious: Yes (Death)
  Sender: FDA-Public Use
  Company Number: PL-CELGENEUS-129-50794-12110831

PATIENT
  Sex: Male

DRUGS (1)
  1. VIDAZA [Suspect]
     Indication: MYELODYSPLASTIC SYNDROME
     Route: 065
     Dates: start: 201209, end: 201304

REACTIONS (5)
  - Myelodysplastic syndrome [Fatal]
  - Adverse event [Unknown]
  - Infection [Unknown]
  - Pneumonia [Unknown]
  - Neutropenia [Unknown]
